FAERS Safety Report 16358505 (Version 6)
Quarter: 2020Q1

REPORT INFORMATION
  Report Type: Spontaneous
  Country: US (occurrence: US)
  Receive Date: 20190527
  Receipt Date: 20200305
  Transmission Date: 20200409
  Serious: Yes (Life-Threatening, Hospitalization, Other)
  Sender: FDA-Public Use
  Company Number: US-PFIZER INC-2019220672

PATIENT
  Age: 55 Year
  Sex: Female
  Weight: 66 kg

DRUGS (6)
  1. LYRICA [Suspect]
     Active Substance: PREGABALIN
     Indication: OSTEOARTHRITIS
  2. METHOTREXATE. [Concomitant]
     Active Substance: METHOTREXATE
     Indication: RHEUMATOID ARTHRITIS
     Dosage: UNK, WEEKLY(0.8 CC ONCE A WEEK, 25 MG/ML)
     Route: 058
  3. FLEXERIL [CEFIXIME] [Concomitant]
     Active Substance: CEFIXIME
     Dosage: UNK, 1X/DAY (AT NIGHT)
  4. ESTRADIOL. [Concomitant]
     Active Substance: ESTRADIOL
     Dosage: UNK
  5. METHOTREXATE. [Concomitant]
     Active Substance: METHOTREXATE
     Indication: OSTEOARTHRITIS
  6. LYRICA [Suspect]
     Active Substance: PREGABALIN
     Indication: RHEUMATOID ARTHRITIS
     Dosage: 75 MG, 3X/DAY
     Route: 048
     Dates: start: 2017

REACTIONS (16)
  - Off label use [Unknown]
  - Coma [Unknown]
  - Product use in unapproved indication [Unknown]
  - Hypovolaemia [Recovered/Resolved]
  - Coronary artery occlusion [Unknown]
  - Ulcer haemorrhage [Recovered/Resolved]
  - Pyloric stenosis [Recovered/Resolved]
  - Weight decreased [Unknown]
  - Myocardial infarction [Recovered/Resolved with Sequelae]
  - Condition aggravated [Recovered/Resolved]
  - Pulmonary embolism [Unknown]
  - Haematemesis [Recovered/Resolved with Sequelae]
  - Abdominal discomfort [Unknown]
  - Drug effective for unapproved indication [Unknown]
  - Deep vein thrombosis [Unknown]
  - Haemoglobin decreased [Unknown]

NARRATIVE: CASE EVENT DATE: 2017
